FAERS Safety Report 8487398-2 (Version None)
Quarter: 2012Q2

REPORT INFORMATION
  Report Type: 
  Country: None (occurrence: None)
  Receive Date: 20120628
  Receipt Date: 20120628
  Transmission Date: 20120825
  Serious: Yes (Other)
  Sender: FDA-Public Use
  Company Number: None

PATIENT
  Sex: Male
  Weight: 78.4723 kg

DRUGS (1)
  1. BUPROPION HCL [Suspect]
     Dosage: ONE PILL DAILY

REACTIONS (1)
  - PRODUCT QUALITY ISSUE [None]
